FAERS Safety Report 11442313 (Version 1)
Quarter: 2015Q3

REPORT INFORMATION
  Report Type: Spontaneous
  Country: US (occurrence: US)
  Receive Date: 20150901
  Receipt Date: 20150901
  Transmission Date: 20151125
  Serious: No
  Sender: FDA-Public Use
  Company Number: CHPA2015US010220

PATIENT
  Sex: Male

DRUGS (1)
  1. VOLTAREN [Suspect]
     Active Substance: DICLOFENAC SODIUM
     Indication: PRODUCT USED FOR UNKNOWN INDICATION
     Dosage: UNK, ONCE/SINGLE
     Route: 048
     Dates: start: 20150831, end: 20150831

REACTIONS (4)
  - Accidental exposure to product [Unknown]
  - Presyncope [Unknown]
  - Oral discomfort [Unknown]
  - Dry mouth [Unknown]

NARRATIVE: CASE EVENT DATE: 20150831
